FAERS Safety Report 14558887 (Version 2)
Quarter: 2019Q2

REPORT INFORMATION
  Report Type: Spontaneous
  Country: FR (occurrence: FR)
  Receive Date: 20180221
  Receipt Date: 20190502
  Transmission Date: 20190711
  Serious: Yes (Life-Threatening)
  Sender: FDA-Public Use
  Company Number: FR-MYLANLABS-2018M1011130

PATIENT
  Age: 67 Year
  Sex: Male
  Weight: 71.1 kg

DRUGS (5)
  1. STELARA [Suspect]
     Active Substance: USTEKINUMAB
     Indication: PSORIATIC ARTHROPATHY
     Dosage: 90 MG, 3XMONTHS
     Route: 058
     Dates: start: 201602
  2. FORMOTEROL [Suspect]
     Active Substance: FORMOTEROL
     Indication: CHRONIC OBSTRUCTIVE PULMONARY DISEASE
     Dosage: 36 ?G, QD
     Route: 055
  3. BUDESONIDE. [Suspect]
     Active Substance: BUDESONIDE
     Indication: CHRONIC OBSTRUCTIVE PULMONARY DISEASE
     Dosage: 1200 MG, QD
     Route: 055
  4. VENTOLINE                          /00139501/ [Suspect]
     Active Substance: ALBUTEROL
     Indication: CHRONIC OBSTRUCTIVE PULMONARY DISEASE
     Dosage: SI BESOIN
     Route: 055
  5. TARKA [Suspect]
     Active Substance: TRANDOLAPRIL\VERAPAMIL HYDROCHLORIDE
     Indication: HYPERTENSION
     Dosage: 180/2MG 1 FOIS PAR JOUR

REACTIONS (1)
  - Adrenal cortex necrosis [Recovered/Resolved]

NARRATIVE: CASE EVENT DATE: 20171206
